FAERS Safety Report 12158504 (Version 1)
Quarter: 2016Q1

REPORT INFORMATION
  Report Type: Spontaneous
  Country: US (occurrence: US)
  Receive Date: 20160308
  Receipt Date: 20160308
  Transmission Date: 20160526
  Serious: No
  Sender: FDA-Public Use
  Company Number: US-JNJFOC-20160225266

PATIENT
  Age: 15 Month
  Sex: Female
  Weight: 10.43 kg

DRUGS (2)
  1. MOTRIN [Suspect]
     Active Substance: IBUPROFEN
     Route: 048
  2. MOTRIN [Suspect]
     Active Substance: IBUPROFEN
     Indication: PYREXIA
     Dosage: 1.25ML AT NOON
     Route: 048
     Dates: start: 20160224

REACTIONS (2)
  - Underdose [Unknown]
  - Drug ineffective [Unknown]
